FAERS Safety Report 19330063 (Version 1)
Quarter: 2021Q2

REPORT INFORMATION
  Report Type: Spontaneous
  Country: BR (occurrence: BR)
  Receive Date: 20210528
  Receipt Date: 20210528
  Transmission Date: 20210717
  Serious: Yes (Hospitalization)
  Sender: FDA-Public Use
  Company Number: BR-GE HEALTHCARE LIFE SCIENCES-2021CSU002485

PATIENT

DRUGS (5)
  1. SALINE [SODIUM CHLORIDE] [Concomitant]
     Active Substance: SODIUM CHLORIDE
     Dosage: 500 ML, SINGLE
     Dates: start: 20210420, end: 20210420
  2. OMNISCAN [Suspect]
     Active Substance: GADODIAMIDE
     Indication: MAGNETIC RESONANCE IMAGING ABDOMINAL
     Dosage: 20 ML, SINGLE
     Route: 042
     Dates: start: 20210420, end: 20210420
  3. SALINE [SODIUM CHLORIDE] [Concomitant]
     Active Substance: SODIUM CHLORIDE
     Dosage: 10 ML, SINGLE
     Dates: start: 20210420, end: 20210420
  4. OMNISCAN [Suspect]
     Active Substance: GADODIAMIDE
     Indication: FIBROMYALGIA
  5. DESLORATADINE. [Concomitant]
     Active Substance: DESLORATADINE
     Indication: ANTIALLERGIC THERAPY
     Dosage: 20 MINUTES BEFORE THE EXAM
     Dates: start: 20210420, end: 20210420

REACTIONS (9)
  - Pallor [Recovered/Resolved]
  - Face oedema [Recovered/Resolved]
  - Tachycardia [Recovered/Resolved]
  - Tremor [Recovered/Resolved]
  - Oxygen saturation decreased [Recovered/Resolved]
  - Syncope [Recovered/Resolved]
  - Hyperhidrosis [Recovered/Resolved]
  - Hypersensitivity [Recovered/Resolved]
  - Hypotension [Recovered/Resolved]

NARRATIVE: CASE EVENT DATE: 20210420
